FAERS Safety Report 11194108 (Version 1)
Quarter: 2015Q2

REPORT INFORMATION
  Report Type: Spontaneous
  Country: US (occurrence: US)
  Receive Date: 20150616
  Receipt Date: 20150616
  Transmission Date: 20150821
  Serious: Yes (Other)
  Sender: FDA-Public Use
  Company Number: US-MYLANLABS-2015M1019564

PATIENT

DRUGS (1)
  1. PHENYTOIN. [Suspect]
     Active Substance: PHENYTOIN
     Indication: EPILEPSY
     Dosage: DAILY
     Route: 048

REACTIONS (3)
  - Wrong technique in drug usage process [Unknown]
  - Chemical injury [Recovering/Resolving]
  - Oesophageal stenosis [Recovering/Resolving]
